FAERS Safety Report 10079170 (Version 1)
Quarter: 2014Q2

REPORT INFORMATION
  Report Type: Spontaneous
  Country: US (occurrence: None)
  Receive Date: 20140414
  Receipt Date: 20140414
  Transmission Date: 20141212
  Serious: Yes (Death)
  Sender: FDA-Public Use
  Company Number: None

PATIENT
  Age: 64 Year
  Sex: Female
  Weight: 106.14 kg

DRUGS (1)
  1. FECAL MICROBIOTA [Suspect]
     Indication: CLOSTRIDIUM DIFFICILE INFECTION
     Dates: start: 20140221, end: 20140221

REACTIONS (3)
  - Pseudomembranous colitis [None]
  - Clostridium difficile infection [None]
  - Disease recurrence [None]
